FAERS Safety Report 25872265 (Version 1)
Quarter: 2025Q4

REPORT INFORMATION
  Report Type: Spontaneous
  Country: EU (occurrence: EU)
  Receive Date: 20251002
  Receipt Date: 20251002
  Transmission Date: 20260119
  Serious: Yes (Other)
  Sender: REGENERON
  Company Number: EU-BAYER-2025A127839

PATIENT
  Age: 74 Year
  Sex: Female

DRUGS (1)
  1. EYLEA HD [Suspect]
     Active Substance: AFLIBERCEPT
     Indication: Neovascular age-related macular degeneration
     Dosage: 8 MG, RIGHT EYE, TOTAL OF 6 DOSES BEFORE ADVERSE EVENT, SOLUTION FOR INJECTION, 114.3 MG/ML
     Route: 031
     Dates: start: 20250820

REACTIONS (10)
  - Keratic precipitates [Not Recovered/Not Resolved]
  - Iris adhesions [Not Recovered/Not Resolved]
  - Vitritis [Not Recovered/Not Resolved]
  - Eye inflammation [Unknown]
  - Anterior chamber cell [Not Recovered/Not Resolved]
  - Anterior chamber flare [Not Recovered/Not Resolved]
  - Visual acuity reduced [Not Recovered/Not Resolved]
  - Eye pain [Not Recovered/Not Resolved]
  - Ocular hyperaemia [Not Recovered/Not Resolved]
  - Multiple use of single-use product [Unknown]

NARRATIVE: CASE EVENT DATE: 20250822
